FAERS Safety Report 5298032-7 (Version None)
Quarter: 2007Q2

REPORT INFORMATION
  Report Type: 
  Country: None (occurrence: None)
  Receive Date: 20070409
  Receipt Date: 20070330
  Transmission Date: 20071010
  Serious: Yes (Hospitalization)
  Sender: FDA-Public Use
  Company Number: 2007SP005949

PATIENT
  Age: 73 Year
  Sex: Male
  Weight: 55 kg

DRUGS (4)
  1. PEG-INTRON [Suspect]
     Indication: HEPATITIS C
     Dosage: 50 MCG; QW; SC
     Route: 058
     Dates: end: 20070321
  2. PEG-INTRON [Suspect]
     Indication: HEPATITIS C
     Dosage: 50 MCG; QW; SC
     Route: 058
     Dates: start: 20060727
  3. REBETOL [Suspect]
     Indication: HEPATITIS C
     Dosage: 400 MG; QD ; PO
     Route: 048
     Dates: end: 20070321
  4. REBETOL [Suspect]
     Indication: HEPATITIS C
     Dosage: 400 MG; QD ; PO
     Route: 048
     Dates: start: 20060727

REACTIONS (3)
  - CONDITION AGGRAVATED [None]
  - DIVERTICULUM INTESTINAL HAEMORRHAGIC [None]
  - PLATELET COUNT DECREASED [None]
